FAERS Safety Report 10177129 (Version 1)
Quarter: 2014Q2

REPORT INFORMATION
  Report Type: Spontaneous
  Country: US (occurrence: None)
  Receive Date: 20140515
  Receipt Date: 20140515
  Transmission Date: 20141212
  Serious: Yes (Other)
  Sender: FDA-Public Use
  Company Number: None

PATIENT
  Sex: 0

DRUGS (1)
  1. DULOXETINE [Suspect]
     Indication: DEPRESSION
     Route: 048

REACTIONS (4)
  - Product substitution issue [None]
  - Depression [None]
  - Anxiety [None]
  - Agitation [None]
